FAERS Safety Report 9278146 (Version 1)
Quarter: 2013Q2

REPORT INFORMATION
  Report Type: Spontaneous
  Country: US (occurrence: None)
  Receive Date: 20130503
  Receipt Date: 20130503
  Transmission Date: 20140414
  Serious: Yes (Hospitalization)
  Sender: FDA-Public Use
  Company Number: None

PATIENT
  Age: 30 Year
  Sex: Female

DRUGS (3)
  1. AGE PERFECT PROCALCIUM RADIANCE PERFECTOR SPF 12 [Suspect]
     Indication: PROPHYLAXIS AGAINST SOLAR RADIATION
     Dates: start: 201012
  2. REVITALIFT DEEP SET WRINKLE REPAIR NIGHT LOTION [Concomitant]
  3. UNSPECIFIED EYE CREAM [Concomitant]

REACTIONS (5)
  - Hypersensitivity [None]
  - Swelling face [None]
  - Exposure during pregnancy [None]
  - Rash erythematous [None]
  - Local swelling [None]
